FAERS Safety Report 12770816 (Version 1)
Quarter: 2016Q3

REPORT INFORMATION
  Report Type: Spontaneous
  Country: US (occurrence: US)
  Receive Date: 20160922
  Receipt Date: 20160922
  Transmission Date: 20161109
  Serious: No
  Sender: FDA-Public Use
  Company Number: None

PATIENT
  Age: 67 Year
  Sex: Male
  Weight: 108.86 kg

DRUGS (3)
  1. BAYER ASPIRIN [Concomitant]
     Active Substance: ASPIRIN
  2. MELATONIN [Concomitant]
     Active Substance: MELATONIN
  3. MELOXICAM. [Suspect]
     Active Substance: MELOXICAM
     Indication: ARTHRITIS
     Dosage: 1 TABLET DAILY ONCE MOUTH
     Route: 048
     Dates: start: 20160808, end: 20160814

REACTIONS (9)
  - Throat tightness [None]
  - Rash [None]
  - Urticaria [None]
  - Chest discomfort [None]
  - Speech disorder [None]
  - Dysphonia [None]
  - Lip swelling [None]
  - Pruritus [None]
  - Swollen tongue [None]

NARRATIVE: CASE EVENT DATE: 20160808
